FAERS Safety Report 5573184-X (Version None)
Quarter: 2007Q4

REPORT INFORMATION
  Report Type: 
  Country: None (occurrence: None)
  Receive Date: 20071224
  Receipt Date: 20071219
  Transmission Date: 20080405
  Serious: Yes (Hospitalization)
  Sender: FDA-Public Use
  Company Number: JP-AVENTIS-200713442JP

PATIENT
  Age: 71 Year
  Sex: Female

DRUGS (3)
  1. AMARYL [Suspect]
     Route: 048
  2. VOGLIBOSE [Concomitant]
  3. PIOGLITAZONE HCL [Concomitant]

REACTIONS (1)
  - HYPOGLYCAEMIC COMA [None]
